FAERS Safety Report 7963194-7 (Version None)
Quarter: 2011Q4

REPORT INFORMATION
  Report Type: 
  Country: None (occurrence: None)
  Receive Date: 20111208
  Receipt Date: 20111206
  Transmission Date: 20120403
  Serious: Yes (Hospitalization)
  Sender: FDA-Public Use
  Company Number: US-BIOGENIDEC-2011BI044355

PATIENT
  Sex: Female

DRUGS (3)
  1. TYSABRI [Suspect]
     Indication: MULTIPLE SCLEROSIS
     Route: 042
     Dates: start: 20101124, end: 20110928
  2. TYSABRI [Suspect]
     Route: 042
     Dates: start: 20061018, end: 20100928
  3. TYSABRI [Suspect]
     Route: 042
     Dates: start: 20050107

REACTIONS (1)
  - FALL [None]
